FAERS Safety Report 8518063-0 (Version None)
Quarter: 2012Q3

REPORT INFORMATION
  Report Type: 
  Country: None (occurrence: None)
  Receive Date: 20120718
  Receipt Date: 20110901
  Transmission Date: 20120928
  Serious: No
  Sender: FDA-Public Use
  Company Number: US-BRISTOL-MYERS SQUIBB COMPANY-16024135

PATIENT
  Sex: Female

DRUGS (1)
  1. WARFARIN SODIUM [Suspect]
     Indication: THROMBOSIS
     Dosage: 6 MG ONCE DAILY TWO DAYS A WEEK 5 MG ONCE DAILY FIVE DAYS A WEEK

REACTIONS (1)
  - PROTHROMBIN TIME RATIO ABNORMAL [None]
